FAERS Safety Report 12692938 (Version 2)
Quarter: 2016Q4

REPORT INFORMATION
  Report Type: Report from Study
  Country: JP (occurrence: JP)
  Receive Date: 20160829
  Receipt Date: 20161019
  Transmission Date: 20170207
  Serious: Yes (Death)
  Sender: FDA-Public Use
  Company Number: JP-UCBSA-2016032451

PATIENT
  Age: 72 Year
  Sex: Male

DRUGS (13)
  1. LEVETIRACETAM. [Suspect]
     Active Substance: LEVETIRACETAM
     Dosage: 500 MG, ONCE DAILY (QD)
     Route: 041
     Dates: start: 20151224, end: 20151224
  2. SULBACILLIN [Concomitant]
     Active Substance: AMPICILLIN SODIUM\SULBACTAM SODIUM
     Indication: INFECTION
     Dosage: 1.5 G, 4X/DAY (QID)
     Route: 042
     Dates: start: 20151219, end: 20151219
  3. ACETAMINOPHEN. [Concomitant]
     Active Substance: ACETAMINOPHEN
     Indication: PYREXIA
     Dosage: 1000 MG, UNK
     Route: 042
     Dates: start: 20151219, end: 20151219
  4. NOR-ADRENALIN [Concomitant]
     Indication: PRODUCT USED FOR UNKNOWN INDICATION
     Dosage: 15 MG, DAILY DOSE
     Route: 042
     Dates: start: 20151218, end: 20151224
  5. UNASYN [Concomitant]
     Active Substance: AMPICILLIN SODIUM\SULBACTAM SODIUM
     Indication: INFECTION
     Dosage: 0.5 G, 4X/DAY (QID)
     Route: 042
     Dates: start: 20151220, end: 20151223
  6. VITAMEDIN [Concomitant]
     Active Substance: CYANOCOBALAMIN\PYRIDOXINE HYDROCHLORIDE\THIAMINE
     Indication: VITAMIN SUPPLEMENTATION
     Dosage: 1 DF, UNK
     Route: 042
     Dates: start: 20151219, end: 20151219
  7. PROPOFOL. [Concomitant]
     Active Substance: PROPOFOL
     Indication: TONIC CONVULSION
     Dosage: 360 ML, UNK
     Route: 042
     Dates: start: 20151218, end: 20151220
  8. CEFAZOLIN SODIUM. [Concomitant]
     Active Substance: CEFAZOLIN SODIUM
     Indication: PRODUCT USED FOR UNKNOWN INDICATION
     Dosage: 2 G, DAILY
     Route: 042
     Dates: start: 20151218, end: 20151218
  9. DORMICUM [Concomitant]
     Active Substance: MIDAZOLAM\MIDAZOLAM HYDROCHLORIDE
     Indication: TONIC CONVULSION
     Dosage: 72 MG, UNK
     Route: 042
     Dates: start: 20151219, end: 20151220
  10. ACETATED RINGER [Concomitant]
     Indication: FLUID REPLACEMENT
     Dosage: 1440 ML, DAILY
     Route: 042
     Dates: start: 20151218, end: 20151224
  11. DIAZEPAM. [Concomitant]
     Active Substance: DIAZEPAM
     Indication: TONIC CONVULSION
     Dosage: 10 MG DAILY DOSE
     Route: 042
     Dates: start: 20151218, end: 20151218
  12. OMEPRAZOLE. [Concomitant]
     Active Substance: OMEPRAZOLE
     Indication: DYSPEPSIA
     Dosage: 20 ML, 2X/DAY (BID)
     Route: 042
     Dates: start: 20151219, end: 20151224
  13. LEVETIRACETAM. [Suspect]
     Active Substance: LEVETIRACETAM
     Indication: TONIC CONVULSION
     Dosage: 500 MG, 2X/DAY (BID)
     Route: 041
     Dates: start: 20151218, end: 20151223

REACTIONS (2)
  - Off label use [Unknown]
  - Hypoxic-ischaemic encephalopathy [Fatal]

NARRATIVE: CASE EVENT DATE: 20151218
